FAERS Safety Report 24130330 (Version 1)
Quarter: 2024Q3

REPORT INFORMATION
  Report Type: Spontaneous
  Country: JP (occurrence: JP)
  Receive Date: 20240724
  Receipt Date: 20240724
  Transmission Date: 20241017
  Serious: Yes (Other)
  Sender: BRISTOL MYERS SQUIBB
  Company Number: JP-BRISTOL-MYERS SQUIBB COMPANY-2023-061515

PATIENT
  Age: 9 Decade
  Sex: Male

DRUGS (6)
  1. EMPLICITI [Suspect]
     Active Substance: ELOTUZUMAB
     Indication: Plasma cell myeloma refractory
     Dosage: ADMINISTERED FOR 3 WEEKS AND THEN STOPPED FOR 1 WEEK
     Route: 041
     Dates: start: 2022
  2. EMPLICITI [Suspect]
     Active Substance: ELOTUZUMAB
     Dosage: ADMINISTERED FOR 3 WEEKS AND THEN STOPPED FOR 1 WEEK
     Route: 041
     Dates: start: 2022
  3. EMPLICITI [Suspect]
     Active Substance: ELOTUZUMAB
     Dosage: ADMINISTERED FOR 3 WEEKS AND THEN STOPPED FOR 1 WEEK
     Route: 041
     Dates: start: 2022
  4. REVLIMID [Suspect]
     Active Substance: LENALIDOMIDE
     Indication: Plasma cell myeloma refractory
     Dosage: ADMINISTERED FOR 3 WEEKS AND THEN STOPPED FOR 1 WEEK
     Route: 048
     Dates: start: 2022
  5. REVLIMID [Suspect]
     Active Substance: LENALIDOMIDE
     Dosage: ADMINISTERED FOR 3 WEEKS AND THEN STOPPED FOR 1 WEEK
     Route: 048
     Dates: start: 2022
  6. LENADEX [Suspect]
     Active Substance: DEXAMETHASONE ACETATE
     Indication: Plasma cell myeloma refractory
     Dosage: ADMINISTERED FOR 3 WEEKS AND THEN STOPPED FOR 1 WEEK
     Dates: start: 2022

REACTIONS (3)
  - Decreased appetite [Recovered/Resolved]
  - Malaise [Recovered/Resolved]
  - Cardiac failure [Recovered/Resolved]

NARRATIVE: CASE EVENT DATE: 20220101
